FAERS Safety Report 9297731 (Version 1)
Quarter: 2013Q2

REPORT INFORMATION
  Report Type: Spontaneous
  Country: US (occurrence: US)
  Receive Date: 20130520
  Receipt Date: 20130520
  Transmission Date: 20140414
  Serious: Yes (Other)
  Sender: FDA-Public Use
  Company Number: PHEH2013US010826

PATIENT
  Sex: Male

DRUGS (3)
  1. TEKTURNA [Suspect]
     Dosage: 300 MG, EVEY MORNING
  2. COREG CR [Concomitant]
     Dosage: 80 MG, QHS
  3. TRIAMTERENE AND HYDROCHLOROTHIAZIDE [Concomitant]

REACTIONS (10)
  - Haematoma [Unknown]
  - Pyrexia [Unknown]
  - Hyperlipidaemia [Unknown]
  - Haemorrhage intracranial [Unknown]
  - Pneumocephalus [Unknown]
  - Hypertension [Unknown]
  - Headache [Unknown]
  - Nausea [Unknown]
  - Dizziness [Unknown]
  - Constipation [Unknown]
